FAERS Safety Report 6111775-8 (Version None)
Quarter: 2009Q1

REPORT INFORMATION
  Report Type: 
  Country: None (occurrence: None)
  Receive Date: 20090311
  Receipt Date: 20080613
  Transmission Date: 20090719
  Serious: No
  Sender: FDA-Public Use
  Company Number: US-TYCO HEALTHCARE/MALLINCKRODT-T200801017

PATIENT

DRUGS (10)
  1. RESTORIL [Suspect]
     Indication: SLEEP DISORDER
     Dosage: 30 MG, QD
     Route: 048
     Dates: start: 20080401
  2. LYRICA [Suspect]
     Indication: FIBROMYALGIA
     Dosage: 100 MG, EVERY MORNING
     Route: 048
     Dates: start: 20071211, end: 20080508
  3. LYRICA [Suspect]
     Dosage: 200-300 MG AT BEDTIME
     Route: 048
     Dates: start: 20071211, end: 20080508
  4. AMBIEN [Suspect]
     Indication: SLEEP DISORDER
     Dosage: 5 MG, QD
     Route: 048
     Dates: start: 20080202, end: 20080401
  5. TIZANIDINE HCL [Concomitant]
     Dosage: 40 MG, 1 IN AM
     Dates: start: 20071211
  6. TIZANIDINE HCL [Concomitant]
     Dosage: 40 MG, 1 IN PM
     Dates: start: 20071211
  7. TIZANIDINE HCL [Concomitant]
     Dosage: 40 MG, 3 AT BEDTIME
     Dates: start: 20071211
  8. CITALOPRAM HYDROBROMIDE [Concomitant]
     Dosage: 20 MG, QD
     Route: 048
     Dates: start: 20080205
  9. TRAMADOL HCL [Concomitant]
     Dosage: 50 MG, 1 EVERY 8 HOURS AS NEEDED
     Route: 048
     Dates: start: 20080429
  10. NEURONTIN [Concomitant]
     Dates: start: 20080508

REACTIONS (5)
  - ARTHRALGIA [None]
  - DYSPEPSIA [None]
  - FEELING ABNORMAL [None]
  - OEDEMA PERIPHERAL [None]
  - PAIN IN EXTREMITY [None]
